FAERS Safety Report 22253990 (Version 1)
Quarter: 2023Q2

REPORT INFORMATION
  Report Type: Spontaneous
  Country: DE (occurrence: DE)
  Receive Date: 20230426
  Receipt Date: 20230426
  Transmission Date: 20230722
  Serious: Yes (Other)
  Sender: FDA-Public Use
  Company Number: DE-BRISTOL-MYERS SQUIBB COMPANY-2023-050178

PATIENT
  Age: 61 Year
  Sex: Female

DRUGS (4)
  1. PEMETREXED [Suspect]
     Active Substance: PEMETREXED
     Indication: Non-small cell lung cancer
     Dosage: UNK(FROM 13-DEC-21 #2-4 CARBOPLATIN/PEMETREXED WITHOUT NIVO/IPIFROM 14-FEB-22 RECEIVING PEMETREXED/N
     Route: 065
     Dates: start: 20211115
  2. CARBOPLATIN [Suspect]
     Active Substance: CARBOPLATIN
     Indication: Non-small cell lung cancer
     Dosage: UNK(FROM 13-DEC-21 #2-4 CARBOPLATIN/PEMETREXED WITHOUT NIVO/IPI)
     Route: 065
     Dates: start: 20211115
  3. OPDIVO [Suspect]
     Active Substance: NIVOLUMAB
     Indication: Non-small cell lung cancer
     Dosage: UNK(FROM 14-FEB-22 RECEIVING PEMETREXED/NIVOLUMAB)
     Route: 065
     Dates: start: 20211115, end: 20220815
  4. YERVOY [Suspect]
     Active Substance: IPILIMUMAB
     Indication: Non-small cell lung cancer
     Dosage: UNK
     Route: 065
     Dates: start: 20211115, end: 20220815

REACTIONS (3)
  - Immune-mediated enterocolitis [Unknown]
  - Immune-mediated hepatitis [Unknown]
  - Immune-mediated nephritis [Unknown]

NARRATIVE: CASE EVENT DATE: 20211125
